FAERS Safety Report 10491710 (Version 2)
Quarter: 2015Q1

REPORT INFORMATION
  Report Type: Spontaneous
  Country: US (occurrence: US)
  Receive Date: 20141002
  Receipt Date: 20150226
  Transmission Date: 20150720
  Serious: No
  Sender: FDA-Public Use
  Company Number: US-GLAXOSMITHKLINE-A1058390A

PATIENT
  Sex: Female

DRUGS (1)
  1. ADVAIR DISKUS [Suspect]
     Active Substance: FLUTICASONE PROPIONATE\SALMETEROL XINAFOATE
     Indication: ASTHMA
     Dosage: 500/50 MCG. UNKNOWN DOSING.
     Route: 065
     Dates: start: 20121220

REACTIONS (7)
  - Drug administration error [Unknown]
  - Malaise [Unknown]
  - Migraine [Unknown]
  - Rhinorrhoea [Unknown]
  - Dyspnoea [Unknown]
  - Hypersensitivity [Unknown]
  - Cough [Unknown]
